FAERS Safety Report 26216950 (Version 1)
Quarter: 2025Q4

REPORT INFORMATION
  Report Type: Spontaneous
  Country: US (occurrence: US)
  Receive Date: 20251231
  Receipt Date: 20251231
  Transmission Date: 20260117
  Serious: Yes (Death, Hospitalization, Other)
  Sender: LUPIN
  Company Number: US-LUPIN PHARMACEUTICALS INC.-2025-11730

PATIENT
  Age: 56 Year
  Sex: Male

DRUGS (2)
  1. TESTOSTERONE [Suspect]
     Active Substance: TESTOSTERONE
     Indication: Muscle mass
     Dosage: UNK
     Route: 065
  2. OXANDROLONE [Suspect]
     Active Substance: OXANDROLONE
     Indication: Muscle mass
     Dosage: UNK
     Route: 065

REACTIONS (3)
  - Sudden cardiac death [Fatal]
  - Intentional product misuse [Fatal]
  - Off label use [Unknown]
